FAERS Safety Report 9136270 (Version 1)
Quarter: 2013Q1

REPORT INFORMATION
  Report Type: Spontaneous
  Country: FR (occurrence: FR)
  Receive Date: 20130304
  Receipt Date: 20130304
  Transmission Date: 20140127
  Serious: Yes (Life-Threatening)
  Sender: FDA-Public Use
  Company Number: FR-GLAXOSMITHKLINE-B0871258A

PATIENT
  Age: 7 Month
  Sex: 0

DRUGS (3)
  1. VENTOLIN [Suspect]
     Indication: NASOPHARYNGITIS
     Route: 055
  2. SERETIDE [Suspect]
     Indication: NASOPHARYNGITIS
     Route: 055
  3. DOLIPRANE [Concomitant]
     Indication: BRONCHIOLITIS
     Route: 065

REACTIONS (2)
  - Cardio-respiratory arrest [Recovered/Resolved]
  - Off label use [Unknown]
